FAERS Safety Report 10945116 (Version 1)
Quarter: 2015Q1

REPORT INFORMATION
  Report Type: Spontaneous
  Country: US (occurrence: None)
  Receive Date: 20150226
  Receipt Date: 20150226
  Transmission Date: 20150721
  Serious: No
  Sender: FDA-Public Use
  Company Number: TPA2009A03141

PATIENT
  Age: 59 Year
  Sex: Male

DRUGS (8)
  1. COLCHICINE. [Concomitant]
     Active Substance: COLCHICINE
  2. LEVOTHYROXINE [Concomitant]
     Active Substance: LEVOTHYROXINE
  3. ULORIC [Suspect]
     Active Substance: FEBUXOSTAT
     Indication: GOUTY TOPHUS
     Dosage: 40 MG, 40 MG 1/4 TAB, 1 IN 1 D, PER ORAL
     Route: 048
     Dates: start: 200911, end: 2009
  4. FOLIC ACID. [Concomitant]
     Active Substance: FOLIC ACID
  5. PREDNISONE. [Concomitant]
     Active Substance: PREDNISONE
  6. VICODIN (PARACETAMOL, HYDROCODONE BITARTRATE) [Concomitant]
  7. ATENOLOL. [Concomitant]
     Active Substance: ATENOLOL
  8. ULORIC [Suspect]
     Active Substance: FEBUXOSTAT
     Indication: ARTHRALGIA
     Dosage: 40 MG, 40 MG 1/4 TAB, 1 IN 1 D, PER ORAL
     Route: 048
     Dates: start: 200911, end: 2009

REACTIONS (12)
  - Rash [None]
  - Pruritus [None]
  - Skin discolouration [None]
  - Hair growth abnormal [None]
  - Gout [None]
  - Weight increased [None]
  - Nausea [None]
  - Musculoskeletal stiffness [None]
  - Malaise [None]
  - Rhinorrhoea [None]
  - Semen discolouration [None]
  - Milia [None]

NARRATIVE: CASE EVENT DATE: 2009
